FAERS Safety Report 6992534-0 (Version None)
Quarter: 2010Q3

REPORT INFORMATION
  Report Type: 
  Country: None (occurrence: None)
  Receive Date: 20100916
  Receipt Date: 20100916
  Transmission Date: 20110219
  Serious: Yes (Disabling, Other)
  Sender: FDA-Public Use
  Company Number: None

PATIENT
  Age: 65 Year
  Sex: Female
  Weight: 53.5244 kg

DRUGS (1)
  1. OXYBUTYNIN [Suspect]
     Indication: URINARY INCONTINENCE
     Dosage: 10 MG 1
     Dates: start: 20100831, end: 20100907

REACTIONS (4)
  - DRY EYE [None]
  - EYE PRURITUS [None]
  - EYE SWELLING [None]
  - IMPAIRED WORK ABILITY [None]
